FAERS Safety Report 14104216 (Version 5)
Quarter: 2018Q4

REPORT INFORMATION
  Report Type: Spontaneous
  Country: KR (occurrence: KR)
  Receive Date: 20171018
  Receipt Date: 20181206
  Transmission Date: 20190204
  Serious: Yes (Other)
  Sender: FDA-Public Use
  Company Number: KR-009507513-1710KOR006337

PATIENT
  Age: 36 Year
  Sex: Male
  Weight: 67.5 kg

DRUGS (10)
  1. CYTARABINE. [Concomitant]
     Active Substance: CYTARABINE
     Indication: ACUTE MYELOID LEUKAEMIA
     Dosage: 3640 MILLIGRAM, QD (ONCE DAILY)
     Route: 042
     Dates: start: 20170408, end: 20170412
  2. GRASIN [Concomitant]
     Indication: PROPHYLAXIS
     Dosage: 450 MICROGRAM, (ONCE DAILLY)
     Route: 058
     Dates: start: 20170407, end: 20170412
  3. ONSETRON [Concomitant]
     Active Substance: ONDANSETRON
     Indication: PROPHYLAXIS OF NAUSEA AND VOMITING
     Dosage: 8 MILLIGRAM, BID (TWICE DAY)
     Route: 042
     Dates: start: 20170408, end: 20170412
  4. NOXAFIL [Suspect]
     Active Substance: POSACONAZOLE
     Dosage: 300 MG, ONCE A DAY
     Route: 048
     Dates: start: 20170409, end: 20170427
  5. FLUDARA [Concomitant]
     Active Substance: FLUDARABINE PHOSPHATE
     Indication: ACUTE MYELOID LEUKAEMIA
     Dosage: 55 MILLIGRAM, QD (ONCE DAILY)
     Route: 042
     Dates: start: 20170408, end: 20170412
  6. ZAVEDOS [Concomitant]
     Active Substance: IDARUBICIN
     Indication: ACUTE MYELOID LEUKAEMIA
     Dosage: 18 MILLIGRAM, QD (ONCE DAILY)
     Route: 042
     Dates: start: 20170408, end: 20170410
  7. FLAREX [Concomitant]
     Active Substance: FLUOROMETHOLONE ACETATE
     Indication: PROPHYLAXIS
     Dosage: UNK MILLILITER, QID
     Route: 047
     Dates: start: 20170408, end: 20170415
  8. NOXAFIL [Suspect]
     Active Substance: POSACONAZOLE
     Indication: FUNGAL INFECTION
     Dosage: 300 MG, TWICE A DAY
     Route: 048
     Dates: start: 20170408, end: 20170408
  9. ALLOPURINOL. [Concomitant]
     Active Substance: ALLOPURINOL
     Indication: PROPHYLAXIS
     Dosage: 1 TABLET, TID (THREE TIMES A DAY)
     Route: 048
     Dates: start: 20170408, end: 20170411
  10. URSA TABLETS [Concomitant]
     Indication: HEPATIC STEATOSIS
     Dosage: 1 TABLET TID, (THREE TIMES DAY)
     Route: 048
     Dates: start: 20170407

REACTIONS (4)
  - Febrile neutropenia [Recovered/Resolved]
  - Neutropenia [Recovered/Resolved]
  - Escherichia bacteraemia [Recovered/Resolved]
  - Pneumonia fungal [Recovered/Resolved]

NARRATIVE: CASE EVENT DATE: 20170411
